FAERS Safety Report 4536085-1 (Version None)
Quarter: 2004Q4

REPORT INFORMATION
  Report Type: 
  Country: None (occurrence: None)
  Receive Date: 20041223
  Receipt Date: 20041014
  Transmission Date: 20050328
  Serious: Yes (Other)
  Sender: FDA-Public Use
  Company Number: GB-BRISTOL-MYERS SQUIBB COMPANY-12733887

PATIENT
  Age: 20 Year
  Sex: Male
  Weight: 90 kg

DRUGS (1)
  1. ABILIFY [Suspect]
     Indication: SCHIZOPHRENIA
     Dosage: DOSE CHANGED ON 20-OCT-2004 AND THE PATIENT RECOVERED.
     Route: 048
     Dates: start: 20041008

REACTIONS (2)
  - EXTRAPYRAMIDAL DISORDER [None]
  - SCHIZOPHRENIA [None]
